FAERS Safety Report 8168557-5 (Version None)
Quarter: 2012Q1

REPORT INFORMATION
  Report Type: 
  Country: None (occurrence: None)
  Receive Date: 20120227
  Receipt Date: 20120227
  Transmission Date: 20120608
  Serious: Yes (Other)
  Sender: FDA-Public Use
  Company Number: None

PATIENT
  Age: 62 Year
  Sex: Male
  Weight: 95.254 kg

DRUGS (1)
  1. LIVALO [Suspect]
     Indication: BLOOD CHOLESTEROL INCREASED
     Dosage: 1.0 MG
     Route: 048
     Dates: start: 20120201, end: 20120220

REACTIONS (6)
  - FLUSHING [None]
  - CHILLS [None]
  - EAR DISCOMFORT [None]
  - CONSTIPATION [None]
  - ASTHENIA [None]
  - CONFUSIONAL STATE [None]
